FAERS Safety Report 10997995 (Version 1)
Quarter: 2015Q2

REPORT INFORMATION
  Report Type: Spontaneous
  Country: US (occurrence: US)
  Receive Date: 20150408
  Receipt Date: 20150408
  Transmission Date: 20150821
  Serious: No
  Sender: FDA-Public Use
  Company Number: US-BANPHARM-20153456

PATIENT
  Age: 52 Year
  Sex: Male
  Weight: 90.72 kg

DRUGS (1)
  1. ALEVE [Suspect]
     Active Substance: NAPROXEN SODIUM
     Dosage: 1 DF,
     Route: 048
     Dates: start: 20150213

REACTIONS (7)
  - Peripheral swelling [Recovered/Resolved]
  - Periorbital oedema [Recovered/Resolved]
  - Eye swelling [Recovered/Resolved]
  - Generalised erythema [Recovered/Resolved]
  - Pallor [Recovered/Resolved]
  - Swelling face [Recovered/Resolved]
  - Urticaria [Recovered/Resolved]

NARRATIVE: CASE EVENT DATE: 20150213
